FAERS Safety Report 22294625 (Version 1)
Quarter: 2023Q2

REPORT INFORMATION
  Report Type: Spontaneous
  Country: US (occurrence: US)
  Receive Date: 20230508
  Receipt Date: 20230508
  Transmission Date: 20230721
  Serious: No
  Sender: FDA-Public Use
  Company Number: US-AMNEAL PHARMACEUTICALS-2022-AMRX-02742

PATIENT
  Age: 68 Year
  Sex: Male
  Weight: 95.238 kg

DRUGS (2)
  1. DICLOFENAC SODIUM [Suspect]
     Active Substance: DICLOFENAC SODIUM
     Indication: Arthritis
     Dosage: 4 TIMES A DAY TOPICALLY. USE AS DIRECTED PER DOSING GUIDE. DO NOT EXCEED 4 TIMES PER DAY. DO NOT APP
     Route: 061
     Dates: start: 20220711, end: 20220713
  2. LOSARTAN POTASSIUM [Concomitant]
     Active Substance: LOSARTAN POTASSIUM
     Indication: Blood pressure abnormal
     Dosage: 25 MG, ONCE A DAY
     Route: 065

REACTIONS (5)
  - Peripheral swelling [Recovering/Resolving]
  - Blister [Recovering/Resolving]
  - Urticaria [Recovering/Resolving]
  - Rash [Recovering/Resolving]
  - Product substitution issue [Unknown]

NARRATIVE: CASE EVENT DATE: 20220712
